FAERS Safety Report 13404041 (Version 1)
Quarter: 2017Q2

REPORT INFORMATION
  Report Type: Spontaneous
  Country: FR (occurrence: FR)
  Receive Date: 20170405
  Receipt Date: 20170405
  Transmission Date: 20170830
  Serious: Yes (Hospitalization, Other)
  Sender: FDA-Public Use
  Company Number: FR-UCBSA-2017012305

PATIENT
  Age: 54 Year
  Sex: Male

DRUGS (7)
  1. KEPPRA [Suspect]
     Active Substance: LEVETIRACETAM
     Indication: STATUS EPILEPTICUS
     Dosage: STRENGTH-100 MG/ML, 500 MG, ONCE DAILY (QD)
     Route: 042
     Dates: start: 20170219, end: 20170223
  2. PRODILANTIN [Suspect]
     Active Substance: FOSPHENYTOIN SODIUM
     Indication: STATUS EPILEPTICUS
     Dosage: STRENGTH- 75 MG/ML, 450 MG, ONCE DAILY (QD)
     Route: 042
     Dates: start: 20170218, end: 20170225
  3. KEPPRA [Suspect]
     Active Substance: LEVETIRACETAM
     Indication: OFF LABEL USE
  4. PERFALGAN [Suspect]
     Active Substance: ACETAMINOPHEN
     Indication: PYREXIA
     Dosage: 4 G, ONCE DAILY (QD)
     Route: 042
     Dates: start: 20170219, end: 20170223
  5. CLAFORAN [Suspect]
     Active Substance: CEFOTAXIME SODIUM
     Indication: PYREXIA
     Dosage: 4 G, ONCE DAILY (QD)
     Route: 042
     Dates: start: 20170219, end: 20170223
  6. NOVORAPID [Suspect]
     Active Substance: INSULIN ASPART
     Indication: HYPERGLYCAEMIA
     Dosage: UNK
     Route: 058
     Dates: start: 20170219, end: 20170223
  7. TRANXENE T-TAB [Suspect]
     Active Substance: CLORAZEPATE DIPOTASSIUM
     Indication: STATUS EPILEPTICUS
     Dosage: 20 MG, ONCE DAILY (QD)
     Route: 042
     Dates: start: 20170219, end: 20170223

REACTIONS (2)
  - Off label use [Unknown]
  - Pancytopenia [Recovering/Resolving]

NARRATIVE: CASE EVENT DATE: 20170221
